FAERS Safety Report 7448931-2 (Version None)
Quarter: 2011Q2

REPORT INFORMATION
  Report Type: 
  Country: None (occurrence: None)
  Receive Date: 20110429
  Receipt Date: 20100831
  Transmission Date: 20111010
  Serious: No
  Sender: FDA-Public Use
  Company Number: US-ASTRAZENECA-2010SE40942

PATIENT
  Sex: Female
  Weight: 83.5 kg

DRUGS (1)
  1. NEXIUM [Suspect]
     Indication: GASTROOESOPHAGEAL REFLUX DISEASE
     Route: 048
     Dates: start: 20080101, end: 20100701

REACTIONS (4)
  - ASPIRATION [None]
  - DRUG DOSE OMISSION [None]
  - DYSPEPSIA [None]
  - SLEEP DISORDER DUE TO A GENERAL MEDICAL CONDITION [None]
